FAERS Safety Report 13574087 (Version 2)
Quarter: 2017Q2

REPORT INFORMATION
  Report Type: Spontaneous
  Country: JP (occurrence: JP)
  Receive Date: 20170523
  Receipt Date: 20170609
  Transmission Date: 20170830
  Serious: Yes (Life-Threatening, Hospitalization)
  Sender: FDA-Public Use
  Company Number: JP-TEVA-771018ROM

PATIENT
  Age: 37 Year
  Sex: Male
  Weight: 70 kg

DRUGS (3)
  1. CISPLATIN. [Suspect]
     Active Substance: CISPLATIN
     Indication: RETROPERITONEAL CANCER
     Dosage: PART OF BEP THERAPY
     Route: 065
     Dates: start: 20140604
  2. ETOPOSIDE. [Suspect]
     Active Substance: ETOPOSIDE
     Indication: RETROPERITONEAL CANCER
     Dosage: PART OF BEP THERAPY
     Route: 065
     Dates: start: 20140604
  3. BLEOMYCIN [Suspect]
     Active Substance: BLEOMYCIN SULFATE
     Indication: RETROPERITONEAL CANCER
     Dosage: PART OF BEP THERAPY
     Route: 065
     Dates: start: 20140604

REACTIONS (4)
  - Acute myocardial infarction [Recovered/Resolved]
  - Cardio-respiratory arrest [Recovered/Resolved]
  - Neutropenia [Unknown]
  - Thrombosis [Recovered/Resolved]
